FAERS Safety Report 25639707 (Version 1)
Quarter: 2025Q3

REPORT INFORMATION
  Report Type: Spontaneous
  Country: US (occurrence: None)
  Receive Date: 20250803
  Receipt Date: 20250803
  Transmission Date: 20251021
  Serious: Yes (Hospitalization)
  Sender: FDA-CTU
  Company Number: None

PATIENT
  Age: 68 Year
  Sex: Female
  Weight: 67.2 kg

DRUGS (2)
  1. CISPLATIN [Suspect]
     Active Substance: CISPLATIN
  2. ALIMTA [Suspect]
     Active Substance: PEMETREXED DISODIUM

REACTIONS (2)
  - Oesophageal pain [None]
  - Vomiting [None]

NARRATIVE: CASE EVENT DATE: 20250726
